FAERS Safety Report 8585000-2 (Version None)
Quarter: 2012Q3

REPORT INFORMATION
  Report Type: 
  Country: None (occurrence: None)
  Receive Date: 20120810
  Receipt Date: 20120807
  Transmission Date: 20120928
  Serious: Yes (Other)
  Sender: FDA-Public Use
  Company Number: US-PFIZER INC-2012193248

PATIENT

DRUGS (4)
  1. CELEBREX [Suspect]
     Dosage: UNK
  2. LIPITOR [Suspect]
     Dosage: UNK
  3. LATANOPROST [Suspect]
     Dosage: UNK
  4. NEURONTIN [Suspect]
     Dosage: UNK

REACTIONS (3)
  - ARTHRITIS [None]
  - HYPERTENSION [None]
  - ARTHROPATHY [None]
